FAERS Safety Report 10028148 (Version 1)
Quarter: 2014Q1

REPORT INFORMATION
  Report Type: Spontaneous
  Country: US (occurrence: None)
  Receive Date: 20140319
  Receipt Date: 20140319
  Transmission Date: 20141002
  Serious: Yes (Death, Hospitalization)
  Sender: FDA-Public Use
  Company Number: SYM-2014-18786

PATIENT
  Age: 50 Year
  Sex: Female

DRUGS (3)
  1. BUPROPION (EXTEDED RELEASE) [Suspect]
     Indication: SUICIDE ATTEMPT
     Dosage: 12000 MG, 1 IN 1 D
     Route: 048
  2. METOPROLOL [Suspect]
     Indication: SUICIDE ATTEMPT
     Dosage: 4000 MG, 1 IN 1 D
     Route: 048
  3. FENOFIBRATE (FENOFIBRATE) (FENOFIBRATE) [Concomitant]

REACTIONS (11)
  - Cardiogenic shock [None]
  - Intentional overdose [None]
  - Bradycardia [None]
  - Hypotension [None]
  - Cardiac arrest [None]
  - Multi-organ failure [None]
  - Exposure via ingestion [None]
  - Somnolence [None]
  - Convulsion [None]
  - Ejection fraction decreased [None]
  - Completed suicide [None]
